FAERS Safety Report 19654596 (Version 1)
Quarter: 2021Q3

REPORT INFORMATION
  Report Type: Spontaneous
  Country: HU (occurrence: HU)
  Receive Date: 20210804
  Receipt Date: 20210804
  Transmission Date: 20211014
  Serious: Yes (Death, Hospitalization)
  Sender: FDA-Public Use
  Company Number: HU-CELLTRION INC.-2021HU010442

PATIENT

DRUGS (4)
  1. FLUDARABINE [Suspect]
     Active Substance: FLUDARABINE PHOSPHATE
     Indication: CHRONIC LYMPHOCYTIC LEUKAEMIA
     Dosage: EVERY 28 DAYS
     Route: 065
  2. RITUXIMAB (UNKNOWN) [Suspect]
     Active Substance: RITUXIMAB
     Indication: CHRONIC LYMPHOCYTIC LEUKAEMIA
     Dosage: 375 MG/M2 EVERY 28 DAYS (IN 28?DAYS CYCLES; IN CYCLE 1)
     Route: 041
  3. RITUXIMAB (UNKNOWN) [Suspect]
     Active Substance: RITUXIMAB
     Dosage: 500 MG/M2 EVERY 28 DAYS (IN 28?DAYS CYCLES; IN CYCLES 2?6)
     Route: 041
  4. CYCLOPHOSPHAMIDE. [Suspect]
     Active Substance: CYCLOPHOSPHAMIDE
     Indication: CHRONIC LYMPHOCYTIC LEUKAEMIA
     Dosage: EVERY 28 DAYS
     Route: 042

REACTIONS (3)
  - Sepsis [Fatal]
  - Anaemia [Unknown]
  - Thrombocytopenia [Unknown]
